FAERS Safety Report 14033372 (Version 2)
Quarter: 2018Q2

REPORT INFORMATION
  Report Type: Spontaneous
  Country: US (occurrence: US)
  Receive Date: 20171002
  Receipt Date: 20180613
  Transmission Date: 20180711
  Serious: No
  Sender: FDA-Public Use
  Company Number: US-JAZZ-2017-US-010465

PATIENT
  Sex: Female

DRUGS (52)
  1. CREON [Concomitant]
     Active Substance: PANCRELIPASE AMYLASE\PANCRELIPASE LIPASE\PANCRELIPASE PROTEASE
  2. ARIMIDEX [Concomitant]
     Active Substance: ANASTROZOLE
  3. PYRIDIUM [Concomitant]
     Active Substance: PHENAZOPYRIDINE
  4. FENTANYL. [Concomitant]
     Active Substance: FENTANYL
  5. XYLOCAINE [Concomitant]
     Active Substance: LIDOCAINE HYDROCHLORIDE
  6. MORPHINE SULF [Concomitant]
     Active Substance: MORPHINE SULFATE
  7. ZYRTEC-D [Concomitant]
     Active Substance: CETIRIZINE HYDROCHLORIDE\PSEUDOEPHEDRINE HYDROCHLORIDE
  8. RITALIN [Concomitant]
     Active Substance: METHYLPHENIDATE HYDROCHLORIDE
  9. ZOLOFT [Concomitant]
     Active Substance: SERTRALINE HYDROCHLORIDE
  10. ELMIRON [Concomitant]
     Active Substance: PENTOSAN POLYSULFATE SODIUM
  11. MIRALAX [Concomitant]
     Active Substance: POLYETHYLENE GLYCOL 3350
  12. CIPRO [Concomitant]
     Active Substance: CIPROFLOXACIN HYDROCHLORIDE
  13. AMBIEN [Concomitant]
     Active Substance: ZOLPIDEM TARTRATE
  14. OMEPRAZOLE. [Concomitant]
     Active Substance: OMEPRAZOLE
  15. XYREM [Suspect]
     Active Substance: SODIUM OXYBATE
     Indication: CATAPLEXY
  16. PROPOFOL. [Concomitant]
     Active Substance: PROPOFOL
  17. MIDAZOLAM HCL [Concomitant]
     Active Substance: MIDAZOLAM HYDROCHLORIDE
  18. DEXAMETHASONE ACETATE [Concomitant]
     Active Substance: DEXAMETHASONE ACETATE
  19. CALCARB [Concomitant]
  20. IBUPROFEN                          /00109205/ [Concomitant]
     Active Substance: IBUPROFEN
  21. NASACORT ALLERGY 24HR [Concomitant]
     Active Substance: TRIAMCINOLONE ACETONIDE
  22. SOMA [Concomitant]
     Active Substance: CARISOPRODOL
  23. PROMETHAZINE [Concomitant]
     Active Substance: PROMETHAZINE\PROMETHAZINE HYDROCHLORIDE
  24. DEXAMETHASONE. [Concomitant]
     Active Substance: DEXAMETHASONE
  25. SUCCINYLCHOLIN [Concomitant]
  26. ONDANSETRON HCL [Concomitant]
     Active Substance: ONDANSETRON HYDROCHLORIDE
  27. FISH OIL CONCENTRATE [Concomitant]
     Active Substance: FISH OIL
  28. MAXALT [Concomitant]
     Active Substance: RIZATRIPTAN BENZOATE
  29. ZOFRAN [Concomitant]
     Active Substance: ONDANSETRON HYDROCHLORIDE
  30. RAPAFLO [Concomitant]
     Active Substance: SILODOSIN
  31. AROMASIN [Concomitant]
     Active Substance: EXEMESTANE
  32. EXCEDRIN EXTRA STRENGTH [Concomitant]
     Active Substance: ACETAMINOPHEN\ASPIRIN\CAFFEINE
  33. STOOL SOFTENER (DOCUSATE) [Concomitant]
     Active Substance: DOCUSATE
  34. TOPAMAX [Concomitant]
     Active Substance: TOPIRAMATE
  35. XYREM [Suspect]
     Active Substance: SODIUM OXYBATE
     Indication: NARCOLEPSY
     Dosage: 4.5G, BID
     Route: 048
     Dates: start: 200902
  36. ESTRACE [Concomitant]
     Active Substance: ESTRADIOL
  37. FLONASE                            /00908302/PYRIDIUM [Concomitant]
  38. ROCURONIUM [Concomitant]
     Active Substance: ROCURONIUM BROMIDE
  39. VISTARIL                           /00058402/ [Concomitant]
     Active Substance: HYDROXYZINE HYDROCHLORIDE
  40. BETHANECHOL [Concomitant]
     Active Substance: BETHANECHOL
  41. LIDOCAINE. [Concomitant]
     Active Substance: LIDOCAINE
  42. PROVIGIL [Concomitant]
     Active Substance: MODAFINIL
  43. SYSTANE BALANCE [Concomitant]
     Active Substance: PROPYLENE GLYCOL
  44. METRONIDAZOLE. [Concomitant]
     Active Substance: METRONIDAZOLE
  45. TRIMETHOPRIM. [Concomitant]
     Active Substance: TRIMETHOPRIM
  46. EFFEXOR [Concomitant]
     Active Substance: VENLAFAXINE HYDROCHLORIDE
  47. IMITREX [Concomitant]
     Active Substance: SUMATRIPTAN SUCCINATE
  48. RECLAST [Concomitant]
     Active Substance: ZOLEDRONIC ACID
  49. ZYRTEC [Concomitant]
     Active Substance: CETIRIZINE HYDROCHLORIDE
  50. PERCOCET [Concomitant]
     Active Substance: ACETAMINOPHEN\OXYCODONE HYDROCHLORIDE
  51. EVISTA [Concomitant]
     Active Substance: RALOXIFENE HYDROCHLORIDE
  52. SYNTHROID [Concomitant]
     Active Substance: LEVOTHYROXINE SODIUM

REACTIONS (5)
  - Nausea [Unknown]
  - Inappropriate schedule of drug administration [Unknown]
  - Vomiting [Unknown]
  - Extra dose administered [Unknown]
  - Bladder pain [Not Recovered/Not Resolved]
